FAERS Safety Report 8404905-6 (Version None)
Quarter: 2012Q2

REPORT INFORMATION
  Report Type: 
  Country: None (occurrence: None)
  Receive Date: 20120601
  Receipt Date: 20110926
  Transmission Date: 20120825
  Serious: No
  Sender: FDA-Public Use
  Company Number: US-ASTRAZENECA-2011SE36401

PATIENT
  Age: 66 Year
  Sex: Female

DRUGS (3)
  1. ATACAND HCT [Suspect]
     Route: 048
  2. ATACAND HCT [Suspect]
     Route: 048
  3. TOPROL-XL [Suspect]
     Route: 048

REACTIONS (5)
  - CHILLS [None]
  - HYPOTENSION [None]
  - NAUSEA [None]
  - DIZZINESS [None]
  - COLD SWEAT [None]
